FAERS Safety Report 16130691 (Version 4)
Quarter: 2019Q3

REPORT INFORMATION
  Report Type: Report from Study
  Country: None (occurrence: US)
  Receive Date: 20190328
  Receipt Date: 20190815
  Transmission Date: 20191004
  Serious: Yes (Hospitalization, Other)
  Sender: FDA-Public Use
  Company Number: US-ABBVIE-19K-163-2719834-00

PATIENT
  Age: 38 Year
  Sex: Female
  Weight: 80.81 kg

DRUGS (12)
  1. GABAPENTINE [Concomitant]
     Active Substance: GABAPENTIN
     Indication: IMMUNE SYSTEM DISORDER
  2. TIZANIDINE. [Concomitant]
     Active Substance: TIZANIDINE
     Indication: RHEUMATOID ARTHRITIS
  3. HUMIRA [Suspect]
     Active Substance: ADALIMUMAB
     Indication: RHEUMATOID ARTHRITIS
     Route: 058
     Dates: start: 201209, end: 20190103
  4. VITAMIN D [Concomitant]
     Active Substance: VITAMIN D NOS
     Indication: PRODUCT USED FOR UNKNOWN INDICATION
  5. GABAPENTINE [Concomitant]
     Active Substance: GABAPENTIN
     Indication: RHEUMATOID ARTHRITIS
  6. LISINOPRIL. [Concomitant]
     Active Substance: LISINOPRIL
     Indication: HYPERTENSION
  7. PREDNISONE. [Concomitant]
     Active Substance: PREDNISONE
     Indication: RHEUMATOID ARTHRITIS
  8. HUMIRA [Suspect]
     Active Substance: ADALIMUMAB
     Indication: RHEUMATOID ARTHRITIS
     Dosage: HUMIRA CF
     Route: 058
  9. IODINE. [Concomitant]
     Active Substance: IODINE
     Indication: PRODUCT USED FOR UNKNOWN INDICATION
     Dates: start: 201903
  10. GABAPENTINE [Concomitant]
     Active Substance: GABAPENTIN
     Indication: FIBROMYALGIA
  11. TIZANIDINE. [Concomitant]
     Active Substance: TIZANIDINE
     Indication: FIBROMYALGIA
  12. HUMIRA [Suspect]
     Active Substance: ADALIMUMAB
     Route: 058
     Dates: start: 2019, end: 2019

REACTIONS (16)
  - Rheumatoid arthritis [Unknown]
  - Influenza [Not Recovered/Not Resolved]
  - Pain [Not Recovered/Not Resolved]
  - Abdominal pain upper [Recovering/Resolving]
  - Hypothyroidism [Unknown]
  - Pain [Unknown]
  - Deafness unilateral [Recovered/Resolved]
  - Papillary thyroid cancer [Recovering/Resolving]
  - Blood iron decreased [Unknown]
  - Hypersensitivity [Unknown]
  - Fatigue [Not Recovered/Not Resolved]
  - Injection site pain [Unknown]
  - Bronchitis [Not Recovered/Not Resolved]
  - Vision blurred [Unknown]
  - Sinusitis [Unknown]
  - Respiratory tract infection [Not Recovered/Not Resolved]

NARRATIVE: CASE EVENT DATE: 2018
